FAERS Safety Report 8843325 (Version 8)
Quarter: 2013Q4

REPORT INFORMATION
  Report Type: Spontaneous
  Country: US (occurrence: US)
  Receive Date: 20121016
  Receipt Date: 20131016
  Transmission Date: 20140711
  Serious: Yes (Hospitalization, Other)
  Sender: FDA-Public Use
  Company Number: US-009507513-1210USA003960

PATIENT
  Sex: Female
  Weight: 96.15 kg

DRUGS (2)
  1. FOSAMAX [Suspect]
     Indication: OSTEOPOROSIS
     Dosage: 70 MG, QW
     Route: 048
     Dates: start: 20070622, end: 201203
  2. ALENDRONATE SODIUM [Suspect]
     Dosage: 70 MG, UNK
     Route: 048

REACTIONS (15)
  - Open reduction of fracture [Unknown]
  - Femur fracture [Unknown]
  - Fall [Unknown]
  - Malnutrition [Unknown]
  - Haemorrhagic anaemia [Unknown]
  - Neck surgery [Unknown]
  - Femur fracture [Unknown]
  - Foot fracture [Unknown]
  - Low turnover osteopathy [Unknown]
  - Arthritis [Unknown]
  - Syncope [Unknown]
  - Syncope [Unknown]
  - Fracture nonunion [Unknown]
  - Impaired healing [Unknown]
  - Arthralgia [Unknown]
